FAERS Safety Report 19082928 (Version 1)
Quarter: 2021Q2

REPORT INFORMATION
  Report Type: Spontaneous
  Country: US (occurrence: US)
  Receive Date: 20210401
  Receipt Date: 20210401
  Transmission Date: 20210717
  Serious: Yes (Other)
  Sender: FDA-Public Use
  Company Number: US-PFIZER INC-2021349260

PATIENT
  Age: 41 Year
  Sex: Male

DRUGS (1)
  1. METHYLPREDNISOLONE SODIUM SUCCINATE. [Suspect]
     Active Substance: METHYLPREDNISOLONE SODIUM SUCCINATE
     Indication: RENAL TRANSPLANT
     Dosage: UNK
     Route: 042

REACTIONS (5)
  - Hypotension [Unknown]
  - Urticaria [Unknown]
  - Anaphylactic reaction [Unknown]
  - Off label use [Unknown]
  - Bronchospasm [Unknown]
